FAERS Safety Report 7792576-1 (Version None)
Quarter: 2011Q4

REPORT INFORMATION
  Report Type: 
  Country: None (occurrence: None)
  Receive Date: 20111003
  Receipt Date: 20110920
  Transmission Date: 20120403
  Serious: Yes (Hospitalization)
  Sender: FDA-Public Use
  Company Number: NL-TEVA-303120ISR

PATIENT
  Sex: Female

DRUGS (4)
  1. FLUOROURACIL [Suspect]
     Indication: BREAST CANCER
     Dates: start: 20090923, end: 20100106
  2. TAMOXIFEN CITRATE [Suspect]
     Indication: BREAST CANCER
     Dosage: 20 MILLIGRAM;
     Dates: start: 20100120, end: 20110407
  3. CYCLOPHOSPHAMIDE [Suspect]
     Indication: BREAST CANCER
     Dates: start: 20090923, end: 20101006
  4. DOXORUBICIN HCL [Suspect]
     Indication: BREAST CANCER
     Dates: start: 20090923, end: 20101006

REACTIONS (3)
  - BLOOD TRIGLYCERIDES INCREASED [None]
  - TRANSIENT ISCHAEMIC ATTACK [None]
  - HYPERCHOLESTEROLAEMIA [None]
